FAERS Safety Report 6704138-5 (Version None)
Quarter: 2010Q2

REPORT INFORMATION
  Report Type: 
  Country: None (occurrence: None)
  Receive Date: 20100430
  Receipt Date: 20100426
  Transmission Date: 20101027
  Serious: Yes (Hospitalization)
  Sender: FDA-Public Use
  Company Number: US-GILEAD-2010-0028757

PATIENT
  Sex: Female
  Weight: 83.2 kg

DRUGS (3)
  1. LETAIRIS [Suspect]
     Indication: PULMONARY ARTERIAL HYPERTENSION
     Route: 048
     Dates: start: 20080916
  2. REVATIO [Concomitant]
  3. AMLODIPINE [Concomitant]

REACTIONS (1)
  - PNEUMONIA [None]
